FAERS Safety Report 16433459 (Version 2)
Quarter: 2023Q2

REPORT INFORMATION
  Report Type: Spontaneous
  Country: US (occurrence: US)
  Receive Date: 20190614
  Receipt Date: 20230516
  Transmission Date: 20230722
  Serious: Yes (Other)
  Sender: FDA-Public Use
  Company Number: US-JNJFOC-20150927778

PATIENT
  Sex: Male

DRUGS (2)
  1. RISPERDAL [Suspect]
     Active Substance: RISPERIDONE
     Indication: Intellectual disability
     Route: 048
     Dates: start: 2003, end: 2015
  2. RISPERDAL [Suspect]
     Active Substance: RISPERIDONE
     Indication: Disturbance in social behaviour
     Route: 048

REACTIONS (5)
  - Hyperprolactinaemia [Recovered/Resolved]
  - Obesity [Not Recovered/Not Resolved]
  - Hyperglycaemia [Unknown]
  - Gynaecomastia [Not Recovered/Not Resolved]
  - Therapeutic response decreased [Unknown]

NARRATIVE: CASE EVENT DATE: 20030101
